FAERS Safety Report 24039151 (Version 1)
Quarter: 2024Q3

REPORT INFORMATION
  Report Type: Spontaneous
  Country: US (occurrence: US)
  Receive Date: 20240702
  Receipt Date: 20240702
  Transmission Date: 20241016
  Serious: Yes (Other)
  Sender: NOVARTIS
  Company Number: US-002147023-NVSC2024US135027

PATIENT
  Age: 70 Year
  Sex: Male

DRUGS (1)
  1. COSENTYX [Suspect]
     Active Substance: SECUKINUMAB
     Indication: Psoriasis
     Dosage: 300 MG, QW (UNOREADY PEN (300MGX1))
     Route: 058
     Dates: start: 20240620, end: 20240627

REACTIONS (1)
  - Inflammatory bowel disease [Unknown]

NARRATIVE: CASE EVENT DATE: 20240620
